FAERS Safety Report 15288071 (Version 3)
Quarter: 2018Q4

REPORT INFORMATION
  Report Type: Report from Study
  Country: None (occurrence: CA)
  Receive Date: 20180817
  Receipt Date: 20181122
  Transmission Date: 20190204
  Serious: Yes (Hospitalization, Other)
  Sender: FDA-Public Use
  Company Number: CA-ABBVIE-17K-028-2072880-00

PATIENT
  Sex: Female

DRUGS (3)
  1. HUMIRA [Suspect]
     Active Substance: ADALIMUMAB
     Indication: CROHN^S DISEASE
     Route: 058
     Dates: start: 20160602, end: 20170709
  2. HUMIRA [Suspect]
     Active Substance: ADALIMUMAB
     Route: 058
     Dates: start: 20170803, end: 201801
  3. PREDNISONE. [Concomitant]
     Active Substance: PREDNISONE
     Indication: SMALL INTESTINAL OBSTRUCTION
     Route: 048
     Dates: start: 201707, end: 201709

REACTIONS (14)
  - Small intestinal obstruction [Unknown]
  - Intestinal dilatation [Recovered/Resolved]
  - Intestinal fistula [Unknown]
  - Postoperative wound infection [Recovered/Resolved]
  - Gastrointestinal haemorrhage [Unknown]
  - Small intestinal stenosis [Unknown]
  - Crohn^s disease [Unknown]
  - Nausea [Not Recovered/Not Resolved]
  - Vomiting [Not Recovered/Not Resolved]
  - Incisional hernia [Recovered/Resolved]
  - Abdominal lymphadenopathy [Unknown]
  - Enteritis [Recovered/Resolved]
  - Ovarian mass [Recovered/Resolved]
  - Cystitis [Recovered/Resolved]

NARRATIVE: CASE EVENT DATE: 2017
